FAERS Safety Report 6739424-6 (Version None)
Quarter: 2010Q2

REPORT INFORMATION
  Report Type: 
  Country: None (occurrence: None)
  Receive Date: 20100518
  Receipt Date: 20091027
  Transmission Date: 20101027
  Serious: Yes (Other)
  Sender: FDA-Public Use
  Company Number: WWISSUE-362

PATIENT
  Sex: Female

DRUGS (3)
  1. DOXYCYCLINE HYCLATE [Suspect]
     Dates: start: 20081001
  2. METRONIDAZOLE 100MG [Concomitant]
  3. LEVAQUIN [Concomitant]

REACTIONS (1)
  - LONG QT SYNDROME [None]
